FAERS Safety Report 8807143 (Version 1)
Quarter: 2012Q4

REPORT INFORMATION
  Report Type: 
  Country: US (occurrence: US)
  Receive Date: 20120925
  Receipt Date: 20120925
  Transmission Date: 20130627
  Serious: No
  Sender: FDA-Public Use
  Company Number: US-MYLANLABS-2011S1025645

PATIENT
  Sex: Female

DRUGS (2)
  1. FUROSEMIDE [Suspect]
  2. CAPTON [Suspect]

REACTIONS (1)
  - Cough [Not Recovered/Not Resolved]
